FAERS Safety Report 4487574-X (Version None)
Quarter: 2004Q4

REPORT INFORMATION
  Report Type: 
  Country: None (occurrence: None)
  Receive Date: 20041027
  Receipt Date: 20041027
  Transmission Date: 20050328
  Serious: Yes (Other)
  Sender: FDA-Public Use
  Company Number: None

PATIENT
  Age: 64 Year
  Sex: Male

DRUGS (1)
  1. INSULIN S ELI LILLY [Suspect]
     Dosage: 2X A DAY INJECTION

REACTIONS (1)
  - MEDICATION ERROR [None]
